FAERS Safety Report 8471903-6 (Version None)
Quarter: 2012Q2

REPORT INFORMATION
  Report Type: 
  Country: None (occurrence: None)
  Receive Date: 20120627
  Receipt Date: 20120618
  Transmission Date: 20120825
  Serious: Yes (Other)
  Sender: FDA-Public Use
  Company Number: US-JNJFOC-20120609256

PATIENT
  Age: 47 Year
  Sex: Female
  Weight: 57.15 kg

DRUGS (8)
  1. TOPAMAX [Suspect]
     Route: 048
  2. TOPAMAX [Suspect]
     Route: 048
  3. TOPAMAX [Suspect]
     Route: 048
  4. TOPAMAX [Suspect]
     Indication: CONVULSION
     Route: 048
  5. TOPAMAX [Suspect]
     Route: 048
  6. TOPAMAX [Suspect]
     Route: 048
  7. CARBAMAZEPINE [Concomitant]
     Indication: CONVULSION
     Route: 048
  8. CARBAMAZEPINE [Concomitant]
     Route: 048

REACTIONS (4)
  - GASTROENTERITIS SALMONELLA [None]
  - DIARRHOEA [None]
  - CONVULSION [None]
  - DRUG LEVEL DECREASED [None]
